FAERS Safety Report 16214826 (Version 3)
Quarter: 2019Q2

REPORT INFORMATION
  Report Type: Spontaneous
  Country: US (occurrence: US)
  Receive Date: 20190418
  Receipt Date: 20190531
  Transmission Date: 20190711
  Serious: Yes (Other)
  Sender: FDA-Public Use
  Company Number: US-ASTELLAS-2019US007200

PATIENT
  Age: 55 Year
  Sex: Female

DRUGS (1)
  1. LEXISCAN [Suspect]
     Active Substance: REGADENOSON
     Indication: SCAN MYOCARDIAL PERFUSION
     Dosage: 0.4MG/5ML, ADMINISTERED OVER 15 SECONDS
     Route: 042
     Dates: start: 20181207, end: 20181207

REACTIONS (4)
  - Tremor [Recovered/Resolved]
  - Seizure like phenomena [Recovered/Resolved]
  - Incorrect product administration duration [Unknown]
  - Loss of consciousness [Recovered/Resolved]

NARRATIVE: CASE EVENT DATE: 20181207
